FAERS Safety Report 19001082 (Version 1)
Quarter: 2021Q1

REPORT INFORMATION
  Report Type: Spontaneous
  Country: US (occurrence: US)
  Receive Date: 20210311
  Receipt Date: 20210311
  Transmission Date: 20210420
  Serious: Yes (Other)
  Sender: FDA-Public Use
  Company Number: None

PATIENT
  Age: 49 Year
  Sex: Female
  Weight: 56.7 kg

DRUGS (5)
  1. DOXYCYCLINE. [Concomitant]
     Active Substance: DOXYCYCLINE
     Dates: start: 20210304
  2. LEVOFLOXACIN. [Suspect]
     Active Substance: LEVOFLOXACIN
     Indication: HELICOBACTER INFECTION
     Route: 048
     Dates: start: 20210304, end: 20210306
  3. NYSTATIN. [Concomitant]
     Active Substance: NYSTATIN
     Dates: start: 20210304
  4. OMEPRAZOLE. [Concomitant]
     Active Substance: OMEPRAZOLE
     Dates: start: 20210304
  5. ALINIA [Concomitant]
     Active Substance: NITAZOXANIDE
     Dates: start: 20210304

REACTIONS (2)
  - Neuralgia [None]
  - Arthralgia [None]

NARRATIVE: CASE EVENT DATE: 20210306
